FAERS Safety Report 8000917-5 (Version None)
Quarter: 2011Q4

REPORT INFORMATION
  Report Type: 
  Country: None (occurrence: None)
  Receive Date: 20111215
  Receipt Date: 20111205
  Transmission Date: 20120403
  Serious: Yes (Other)
  Sender: FDA-Public Use
  Company Number: DKLU1075366

PATIENT
  Age: 12 Year
  Sex: Male

DRUGS (5)
  1. METHOTREXATE [Suspect]
     Indication: ACUTE LYMPHOCYTIC LEUKAEMIA
     Dosage: 12 MG MILLIGRAM(S), INDUCTION THERAPY: INTRATHECAL
     Route: 037
  2. PREDNISOLONE [Suspect]
     Indication: ACUTE LYMPHOCYTIC LEUKAEMIA
     Dosage: INDUCTION THERAPY, ORAL
     Route: 048
  3. DOXORUBICIN HCL [Suspect]
     Indication: ACUTE LYMPHOCYTIC LEUKAEMIA
     Dosage: 25 MG/M2 MILLIGRAM(S)/SQ.METER , INDUCTION THERAPY: 4 DOSES
  4. ELSPAR [Suspect]
     Indication: ACUTE LYMPHOCYTIC LEUKAEMIA
     Dosage: INDUCTION THERAPY: BI-WEEKLY, INTRAVENOUS (NOT OTHERWISE SPECIFIED)
     Route: 042
  5. VINCRISTINE [Suspect]
     Indication: ACUTE LYMPHOCYTIC LEUKAEMIA
     Dosage: 1.5 MG/M2 MILLIGRAM(S)/SQ.METER, INDUCTION THERAPY: INTRAVENOUS (NOT OTHERWISE SPECIFIED)
     Route: 042

REACTIONS (6)
  - WEIGHT DECREASED [None]
  - PAIN [None]
  - PYREXIA [None]
  - PANCREATIC CYST [None]
  - DIABETIC KETOACIDOSIS [None]
  - PANCREATIC NECROSIS [None]
